FAERS Safety Report 18584152 (Version 1)
Quarter: 2020Q4

REPORT INFORMATION
  Report Type: Spontaneous
  Country: DE (occurrence: DE)
  Receive Date: 20201207
  Receipt Date: 20201207
  Transmission Date: 20210114
  Serious: Yes (Other)
  Sender: FDA-Public Use
  Company Number: DE-ROCHE-2701153

PATIENT
  Sex: Male
  Weight: 66.8 kg

DRUGS (1)
  1. TECENTRIQ [Suspect]
     Active Substance: ATEZOLIZUMAB
     Indication: SMALL CELL LUNG CANCER
     Dosage: IN COMBINATION WITH CHEMOTHERAPY NOS
     Route: 065
     Dates: end: 20201015

REACTIONS (1)
  - Metastases to meninges [Unknown]
